FAERS Safety Report 16298069 (Version 2)
Quarter: 2020Q4

REPORT INFORMATION
  Report Type: Spontaneous
  Country: US (occurrence: US)
  Receive Date: 20190510
  Receipt Date: 20201027
  Transmission Date: 20210113
  Serious: Yes (Other)
  Sender: FDA-Public Use
  Company Number: US-ASTRAZENECA-2019SE63010

PATIENT
  Age: 15619 Day
  Sex: Male
  Weight: 90.7 kg

DRUGS (36)
  1. TAMSULOSIN [Concomitant]
     Active Substance: TAMSULOSIN
     Indication: RENAL IMPAIRMENT
     Route: 065
     Dates: start: 2014, end: 2017
  2. MOTRIN [Concomitant]
     Active Substance: IBUPROFEN
     Indication: PAIN
     Route: 065
     Dates: start: 1999, end: 2019
  3. BENADRYL [Concomitant]
     Active Substance: DIPHENHYDRAMINE HYDROCHLORIDE
     Indication: COUGH
     Route: 065
     Dates: start: 1999, end: 2019
  4. VICKS NYQUIL [Concomitant]
     Active Substance: ACETAMINOPHEN\DEXTROMETHORPHAN HYDROBROMIDE\DOXYLAMINE SUCCINATE
     Indication: COUGH
     Route: 065
     Dates: start: 1999, end: 2019
  5. PEPCID [Concomitant]
     Active Substance: FAMOTIDINE
     Route: 065
     Dates: start: 2012, end: 2014
  6. ONDANSETRON [Concomitant]
     Active Substance: ONDANSETRON
  7. METOCLOPRAMIDE. [Concomitant]
     Active Substance: METOCLOPRAMIDE
  8. DOCUSATE SODIUM. [Concomitant]
     Active Substance: DOCUSATE SODIUM
  9. GENTAMICIN. [Concomitant]
     Active Substance: GENTAMICIN
  10. TRAMADOL. [Concomitant]
     Active Substance: TRAMADOL
  11. DIPHENHYDRAMINE. [Concomitant]
     Active Substance: DIPHENHYDRAMINE
  12. PRILOSEC [Suspect]
     Active Substance: OMEPRAZOLE MAGNESIUM
     Route: 048
     Dates: start: 200001, end: 201403
  13. HYDROCODONE [Concomitant]
     Active Substance: HYDROCODONE
     Indication: PAIN
     Route: 065
     Dates: start: 201406, end: 201412
  14. TUMS [Concomitant]
     Active Substance: CALCIUM CARBONATE
     Route: 065
     Dates: start: 1989, end: 2013
  15. LEVOFLOXACIN. [Concomitant]
     Active Substance: LEVOFLOXACIN
  16. IOVERSOL [Concomitant]
     Active Substance: IOVERSOL
  17. CENTRUM [Concomitant]
     Active Substance: VITAMINS
     Indication: HYPOVITAMINOSIS
     Route: 065
     Dates: start: 1999, end: 2019
  18. KETOROLAC [Concomitant]
     Active Substance: KETOROLAC TROMETHAMINE
  19. SODIUM CHLORIDE. [Concomitant]
     Active Substance: SODIUM CHLORIDE
  20. LINZESS [Concomitant]
     Active Substance: LINACLOTIDE
     Indication: COLON INJURY
     Route: 065
     Dates: start: 201502, end: 2018
  21. FAMOTIDINE. [Concomitant]
     Active Substance: FAMOTIDINE
  22. HYDROMORPHONE [Concomitant]
     Active Substance: HYDROMORPHONE
  23. LABETALOL [Concomitant]
     Active Substance: LABETALOL\LABETALOL HYDROCHLORIDE
  24. NORCO [Concomitant]
     Active Substance: ACETAMINOPHEN\HYDROCODONE BITARTRATE
  25. PRILOSEC OTC [Suspect]
     Active Substance: OMEPRAZOLE MAGNESIUM
     Indication: GASTROOESOPHAGEAL REFLUX DISEASE
     Route: 048
     Dates: start: 201007, end: 201403
  26. CLINDAMYCIN. [Concomitant]
     Active Substance: CLINDAMYCIN
     Indication: ANTIBIOTIC THERAPY
     Route: 065
     Dates: start: 201403
  27. MEPERIDINE [Concomitant]
     Active Substance: MEPERIDINE
  28. MIDAZOLAM. [Concomitant]
     Active Substance: MIDAZOLAM
  29. LIDOCAINE. [Concomitant]
     Active Substance: LIDOCAINE
  30. HYDROCHLOROTHIAZIDE. [Concomitant]
     Active Substance: HYDROCHLOROTHIAZIDE
     Indication: DIURETIC THERAPY
     Route: 065
     Dates: start: 2014
  31. BENADRYL [Concomitant]
     Active Substance: DIPHENHYDRAMINE HYDROCHLORIDE
     Indication: NASOPHARYNGITIS
     Route: 065
     Dates: start: 1999, end: 2019
  32. VICKS NYQUIL [Concomitant]
     Active Substance: ACETAMINOPHEN\DEXTROMETHORPHAN HYDROBROMIDE\DOXYLAMINE SUCCINATE
     Indication: NASOPHARYNGITIS
     Route: 065
     Dates: start: 1999, end: 2019
  33. FENTANYL. [Concomitant]
     Active Substance: FENTANYL
  34. DEXAMETHASONE. [Concomitant]
     Active Substance: DEXAMETHASONE
  35. MORPHINE [Concomitant]
     Active Substance: MORPHINE
  36. SULFAMETHOXAZOLE-TRIMETHOPRIM [Concomitant]
     Active Substance: SULFAMETHOXAZOLE\TRIMETHOPRIM

REACTIONS (1)
  - Chronic kidney disease [Not Recovered/Not Resolved]

NARRATIVE: CASE EVENT DATE: 20140501
